FAERS Safety Report 23769989 (Version 1)
Quarter: 2024Q2

REPORT INFORMATION
  Report Type: Spontaneous
  Country: FR (occurrence: None)
  Receive Date: 20240422
  Receipt Date: 20240422
  Transmission Date: 20240715
  Serious: Yes (Hospitalization)
  Sender: FDA-Public Use
  Company Number: 2024A094753

PATIENT
  Age: 76 Year
  Sex: Male
  Weight: 73 kg

DRUGS (14)
  1. OMEPRAZOLE [Suspect]
     Active Substance: OMEPRAZOLE
     Route: 048
     Dates: start: 20231007
  2. PREDNISONE [Suspect]
     Active Substance: PREDNISONE
     Dates: start: 20231222
  3. TAHOR [Concomitant]
     Active Substance: ATORVASTATIN CALCIUM
     Indication: Dyslipidaemia
     Dosage: 80
     Dates: start: 202309
  4. AUGMENTIN [Concomitant]
     Active Substance: AMOXICILLIN\CLAVULANATE POTASSIUM
     Dosage: 80
  5. BISOPROLOL [Concomitant]
     Active Substance: BISOPROLOL\BISOPROLOL FUMARATE
     Dosage: MORNING
  6. LIPTRUZET [Concomitant]
     Active Substance: ATORVASTATIN CALCIUM\EZETIMIBE
     Dosage: 10MG/80MG EVENING
  7. EBASTINE [Concomitant]
     Active Substance: EBASTINE
  8. BIMATOPROST\TIMOLOL [Concomitant]
     Active Substance: BIMATOPROST\TIMOLOL
     Dosage: 1 DROPS
  9. VISMET [Concomitant]
     Dosage: 1 DROP 1 TO 4 TIMES A DAY
  10. TAMSULOSIN HYDROCHLORIDE [Concomitant]
     Active Substance: TAMSULOSIN HYDROCHLORIDE
     Dosage: IN THE EVENING
  11. VITAMIN B12 [Concomitant]
     Active Substance: CYANOCOBALAMIN
     Dosage: 1 - ONCE A WEEK
  12. KARDEGIC [Concomitant]
     Active Substance: ASPIRIN DL-LYSINE
     Dates: end: 20231224
  13. KARDEGIC [Concomitant]
     Active Substance: ASPIRIN DL-LYSINE
     Dates: start: 20231229
  14. IVERMECTIN [Concomitant]
     Active Substance: IVERMECTIN
     Indication: Helminthic infection
     Dosage: 1 - ONCE A WEEK

REACTIONS (1)
  - Immune thrombocytopenia [Recovered/Resolved]

NARRATIVE: CASE EVENT DATE: 20231001
